FAERS Safety Report 14862172 (Version 2)
Quarter: 2018Q2

REPORT INFORMATION
  Report Type: Report from Study
  Country: US (occurrence: US)
  Receive Date: 20180508
  Receipt Date: 20180605
  Transmission Date: 20180711
  Serious: Yes (Hospitalization, Other)
  Sender: FDA-Public Use
  Company Number: US-GILEAD-2018-0337010

PATIENT
  Age: 44 Year
  Sex: Male

DRUGS (1)
  1. AMBRISENTAN [Suspect]
     Active Substance: AMBRISENTAN
     Indication: PRODUCT USED FOR UNKNOWN INDICATION
     Dosage: 5 MG, QD
     Route: 065
     Dates: start: 20160419

REACTIONS (5)
  - Oedema peripheral [Not Recovered/Not Resolved]
  - Aspiration [Unknown]
  - Oedema [Not Recovered/Not Resolved]
  - Off label use [Not Recovered/Not Resolved]
  - Pneumonitis [Unknown]
